FAERS Safety Report 10739328 (Version 2)
Quarter: 2015Q1

REPORT INFORMATION
  Report Type: Spontaneous
  Country: US (occurrence: US)
  Receive Date: 20150126
  Receipt Date: 20150319
  Transmission Date: 20150721
  Serious: Yes (Death)
  Sender: FDA-Public Use
  Company Number: US-CELGENE-USA-2015013300

PATIENT
  Age: 60 Year
  Sex: Male

DRUGS (6)
  1. ERBITUX [Concomitant]
     Active Substance: CETUXIMAB
     Indication: PRODUCT USED FOR UNKNOWN INDICATION
     Route: 041
     Dates: start: 201304
  2. ERBITUX [Concomitant]
     Active Substance: CETUXIMAB
     Route: 041
     Dates: start: 201304
  3. ABRAXANE [Suspect]
     Active Substance: PACLITAXEL
     Indication: HEAD AND NECK CANCER
     Route: 041
     Dates: start: 20140814, end: 20141215
  4. CARBOPLATIN. [Concomitant]
     Active Substance: CARBOPLATIN
     Indication: PRODUCT USED FOR UNKNOWN INDICATION
     Route: 065
     Dates: start: 201408
  5. ABRAXANE [Suspect]
     Active Substance: PACLITAXEL
     Indication: TONSIL CANCER
  6. CISPLATIN. [Concomitant]
     Active Substance: CISPLATIN
     Indication: PRODUCT USED FOR UNKNOWN INDICATION
     Route: 041
     Dates: start: 201311

REACTIONS (1)
  - Tonsil cancer [Fatal]

NARRATIVE: CASE EVENT DATE: 20150120
